FAERS Safety Report 7542564-5 (Version None)
Quarter: 2011Q2

REPORT INFORMATION
  Report Type: 
  Country: None (occurrence: None)
  Receive Date: 20110613
  Receipt Date: 20110603
  Transmission Date: 20111010
  Serious: Yes (Other)
  Sender: FDA-Public Use
  Company Number: CZ-ABBOTT-11P-217-0728696-01

PATIENT
  Sex: Female

DRUGS (11)
  1. HUMIRA [Suspect]
     Indication: CROHN'S DISEASE
     Dosage: BASELINE
     Route: 058
     Dates: start: 20091016, end: 20091016
  2. HUMIRA [Suspect]
     Dosage: WEEK 2
     Route: 058
  3. PREDNISONE [Concomitant]
     Indication: CROHN'S DISEASE
     Dates: start: 20090401
  4. MESALAMINE [Concomitant]
     Indication: CROHN'S DISEASE
     Dates: start: 20090401
  5. KALIUM [Concomitant]
     Indication: ELECTROLYTE SUBSTITUTION THERAPY
     Dates: start: 20090501
  6. FAMITIDINUM [Concomitant]
     Indication: CROHN'S DISEASE
  7. ACETAMINOPHEN [Concomitant]
     Indication: PYREXIA
     Dosage: ONE TO FOUR PER DAY
     Dates: start: 20110318, end: 20110329
  8. BUDESONIDE [Concomitant]
     Indication: CROHN'S DISEASE
     Dates: start: 20090701
  9. AZATHIOPRINE [Concomitant]
     Indication: CROHN'S DISEASE
     Dates: start: 20090701
  10. PREDNISONE [Concomitant]
  11. METRONIDAZOLE [Concomitant]
     Indication: FISTULA
     Dates: start: 20090701

REACTIONS (1)
  - ABORTION INDUCED [None]
